FAERS Safety Report 5283058-X (Version None)
Quarter: 2007Q2

REPORT INFORMATION
  Report Type: 
  Country: None (occurrence: None)
  Receive Date: 20070402
  Receipt Date: 20070323
  Transmission Date: 20071010
  Serious: Yes (Hospitalization, Other)
  Sender: FDA-Public Use
  Company Number: JP-BRISTOL-MYERS SQUIBB COMPANY-13194436

PATIENT
  Age: 37 Year
  Sex: Male

DRUGS (9)
  1. STOCRIN CAPS [Suspect]
     Indication: HIV INFECTION
     Dosage: NORMAL DOSAGE 600 MG DAILY
     Route: 048
     Dates: start: 20010401, end: 20051115
  2. STOCRIN CAPS [Suspect]
     Route: 048
     Dates: start: 20051116, end: 20051116
  3. ZERIT [Suspect]
     Indication: HIV INFECTION
     Dosage: STOPPED IN APR-2005, RESTARTED ON AN UNSPECIFIED DATE
     Route: 048
     Dates: start: 20010401, end: 20051116
  4. VIREAD [Suspect]
     Indication: HIV INFECTION
     Route: 048
     Dates: start: 20050401, end: 20051115
  5. VIREAD [Suspect]
     Route: 048
     Dates: start: 20051116, end: 20051116
  6. EPIVIR [Suspect]
     Indication: HIV INFECTION
     Dosage: 300 MG DAILY NORMAL DAILY DOSAGE STOPPED IN MAY-2001, RESTARTED ON AN UNSPECIFIED DATE
     Route: 048
     Dates: start: 20010401, end: 20051115
  7. EPIVIR [Suspect]
     Route: 048
     Dates: start: 20051116, end: 20051116
  8. RHYTHMY [Concomitant]
     Dates: start: 20051114
  9. VALTREX [Concomitant]
     Dates: start: 20051114

REACTIONS (6)
  - DEPRESSED LEVEL OF CONSCIOUSNESS [None]
  - DEPRESSION [None]
  - LIPODYSTROPHY ACQUIRED [None]
  - OVERDOSE [None]
  - SUICIDE ATTEMPT [None]
  - VOMITING [None]
